FAERS Safety Report 11250751 (Version 2)
Quarter: 2015Q3

REPORT INFORMATION
  Report Type: Spontaneous
  Country: US (occurrence: US)
  Receive Date: 20150708
  Receipt Date: 20150803
  Transmission Date: 20151125
  Serious: No
  Sender: FDA-Public Use
  Company Number: US-ELI_LILLY_AND_COMPANY-US201103008547

PATIENT
  Age: 38 Year
  Sex: Female

DRUGS (2)
  1. CLOZAPINE. [Concomitant]
     Active Substance: CLOZAPINE
     Dosage: 300 MG, QD
  2. OLANZAPINE. [Suspect]
     Active Substance: OLANZAPINE
     Indication: SCHIZOPHRENIA
     Dosage: 300 MG, MONTHLY (1/M)

REACTIONS (2)
  - Oligomenorrhoea [Unknown]
  - Drug dose omission [Recovered/Resolved]
